FAERS Safety Report 21789981 (Version 1)
Quarter: 2022Q4

REPORT INFORMATION
  Report Type: Spontaneous
  Country: EG (occurrence: EG)
  Receive Date: 20221228
  Receipt Date: 20221228
  Transmission Date: 20230113
  Serious: Yes (Other)
  Sender: FDA-Public Use
  Company Number: EG-PFIZER INC-PV202200132027

PATIENT
  Age: 70 Year
  Sex: Female

DRUGS (1)
  1. IBRANCE [Suspect]
     Active Substance: PALBOCICLIB
     Indication: Breast cancer metastatic
     Dosage: 125 MG, CYCLIC [1 CAP DAILY FOR 3 WEEKS ON AND 1 WEEK OFF]
     Route: 048
     Dates: start: 20221103

REACTIONS (2)
  - Pulmonary oedema [Unknown]
  - Immunodeficiency [Unknown]
